FAERS Safety Report 20143872 (Version 2)
Quarter: 2022Q1

REPORT INFORMATION
  Report Type: Report from Study
  Country: BR (occurrence: BR)
  Receive Date: 20211203
  Receipt Date: 20220310
  Transmission Date: 20220423
  Serious: Yes (Death, Hospitalization, Other)
  Sender: FDA-Public Use
  Company Number: BR-JNJFOC-20211162415

PATIENT
  Age: 74 Year
  Sex: Male

DRUGS (1)
  1. SIMPONI [Suspect]
     Active Substance: GOLIMUMAB
     Indication: Rheumatoid arthritis
     Dosage: 50 MG OR 100 MG
     Route: 058
     Dates: start: 20130517, end: 202107

REACTIONS (5)
  - Pneumonia [Fatal]
  - Urinary tract infection [Fatal]
  - Infection [Not Recovered/Not Resolved]
  - Vomiting [Unknown]
  - Aspiration [Unknown]

NARRATIVE: CASE EVENT DATE: 20210810
